FAERS Safety Report 25311408 (Version 1)
Quarter: 2025Q2

REPORT INFORMATION
  Report Type: Spontaneous
  Country: FR (occurrence: FR)
  Receive Date: 20250514
  Receipt Date: 20250514
  Transmission Date: 20250716
  Serious: Yes (Other)
  Sender: TAKEDA
  Company Number: FR-BEH-2025199824

PATIENT
  Age: 42 Year
  Sex: Female
  Weight: 62 kg

DRUGS (2)
  1. HUMAN IMMUNOGLOBULIN G [Suspect]
     Active Substance: HUMAN IMMUNOGLOBULIN G
     Indication: Transplant rejection
  2. BERINERT [Suspect]
     Active Substance: HUMAN C1-ESTERASE INHIBITOR
     Indication: Transplant rejection

REACTIONS (6)
  - Superinfection bacterial [Unknown]
  - Bacterial sepsis [Unknown]
  - Device related infection [Unknown]
  - Off label use [Recovered/Resolved]
  - Influenza [Unknown]
  - Adverse event [Unknown]

NARRATIVE: CASE EVENT DATE: 20221123
